FAERS Safety Report 18130049 (Version 1)
Quarter: 2020Q3

REPORT INFORMATION
  Report Type: Report from Study
  Country: US (occurrence: US)
  Receive Date: 20200810
  Receipt Date: 20200810
  Transmission Date: 20201103
  Serious: Yes (Other)
  Sender: FDA-Public Use
  Company Number: US-UCBSA-2020030294

PATIENT
  Sex: Female
  Weight: 25.2 kg

DRUGS (32)
  1. MIDAZOLAM. [Concomitant]
     Active Substance: MIDAZOLAM
     Indication: ANXIETY
  2. SODIUM CHLORIDE 0.9% [Concomitant]
     Active Substance: SODIUM CHLORIDE
     Indication: PRODUCT USED FOR UNKNOWN INDICATION
     Dosage: 277 MILLIGRAM, ONCE DAILY (BOLUS)
     Route: 042
     Dates: start: 20111027, end: 20111027
  3. LACOSAMIDE. [Suspect]
     Active Substance: LACOSAMIDE
     Indication: STATUS EPILEPTICUS
     Dosage: 50 MILLIGRAM, ONCE DAILY (QD)
     Route: 042
     Dates: start: 20111013, end: 20111208
  4. OCULAR LUBRICANT [HYPROMELLOSE] [Concomitant]
     Indication: EYE LUBRICATION THERAPY
     Dosage: UNK, 6X/DAY
     Route: 047
     Dates: start: 20110924, end: 20111103
  5. MIDAZOLAM. [Concomitant]
     Active Substance: MIDAZOLAM
     Indication: SEDATION
     Dosage: 1.385 MG/HR CONTINUOUS AT 0.28ML/HR
     Route: 042
     Dates: start: 20111011, end: 20111018
  6. MIDAZOLAM. [Concomitant]
     Active Substance: MIDAZOLAM
     Indication: AGITATION
  7. LACOSAMIDE. [Suspect]
     Active Substance: LACOSAMIDE
     Indication: OFF LABEL USE
  8. ZONISAMIDE. [Concomitant]
     Active Substance: ZONISAMIDE
     Indication: SEIZURE
     Dosage: 200 MILLIGRAM, 2X/DAY (BID)
     Route: 048
     Dates: start: 20110923, end: 20111018
  9. CLONIDINE. [Concomitant]
     Active Substance: CLONIDINE
     Indication: AGITATION
     Dosage: .1 MILLIGRAM, WEEKLY (QW)
     Route: 062
     Dates: start: 20111007, end: 20111202
  10. ENOXAPARIN [Concomitant]
     Active Substance: ENOXAPARIN
     Indication: THROMBOSIS PROPHYLAXIS
     Dosage: 14 MILLIGRAM, 2X/DAY (BID)
     Route: 058
     Dates: start: 20111003, end: 20111102
  11. DOCUSATE [Concomitant]
     Active Substance: DOCUSATE
     Indication: ABDOMINAL DISCOMFORT
     Dosage: 60 MILLIGRAM, 2X/DAY (BID)
     Route: 048
     Dates: start: 20111006, end: 20111017
  12. HYDROCORTISONE. [Concomitant]
     Active Substance: HYDROCORTISONE
     Indication: ADRENAL INSUFFICIENCY
     Dosage: 8MG DAILY
     Route: 042
     Dates: start: 20111009, end: 20111018
  13. LACOSAMIDE. [Suspect]
     Active Substance: LACOSAMIDE
     Indication: SEIZURE
     Dosage: 70 MILLIGRAM, 2X/DAY (BID)
     Route: 042
     Dates: start: 20111014, end: 20111029
  14. SENNOSIDES. [Concomitant]
     Active Substance: SENNOSIDES
     Indication: ABDOMINAL DISCOMFORT
     Dosage: 5 MILLILITER, 2X/DAY (BID)
     Dates: start: 20111007, end: 20111017
  15. ALBUTEROL [SALBUTAMOL] [Concomitant]
     Active Substance: ALBUTEROL
     Indication: ASTHMA
     Dosage: 1 MILLILITER, 4X/DAY (QID)
     Dates: start: 20111011, end: 20111107
  16. CHLORHEXIDINE [Concomitant]
     Active Substance: CHLORHEXIDINE
     Indication: ORAL DISORDER
     Dosage: 1 MILLILITER, 2X/DAY (BID)
     Route: 048
     Dates: start: 20110923, end: 20111202
  17. VALPROIC ACID. [Concomitant]
     Active Substance: VALPROIC ACID
     Indication: SEIZURE
     Dosage: 310 MILLIGRAM, 4X/DAY (QID) VALPROIC ACID IN NSS
     Route: 042
     Dates: start: 20110929, end: 20111018
  18. CLONIDINE. [Concomitant]
     Active Substance: CLONIDINE
     Indication: SEDATION
  19. GLYCOPYRROLATE [GLYCOPYRRONIUM] [Concomitant]
     Active Substance: GLYCOPYRRONIUM
     Indication: SECRETION DISCHARGE
     Dosage: 1120 MICROGRAM, 3X/DAY (TID)
     Route: 048
     Dates: start: 20111011, end: 20111018
  20. CEFOTAXIME [Concomitant]
     Active Substance: CEFOTAXIME SODIUM
     Indication: URINARY TRACT INFECTION
     Dosage: 1200 MILLIGRAM, 4X/DAY (QID)
     Route: 042
     Dates: start: 20111106, end: 20111108
  21. LEVETIRACETAM. [Suspect]
     Active Substance: LEVETIRACETAM
     Indication: SEIZURE
     Dosage: 1000 MILLIGRAM, UNK
     Dates: start: 20110925, end: 20111202
  22. BACITRACIN ZINC AND POLYMYXIN B SULFATE [Concomitant]
     Active Substance: BACITRACIN ZINC\POLYMYXIN B SULFATE
     Indication: SKIN DISORDER
     Dosage: UNK, 2X/DAY (BID)
     Route: 061
     Dates: start: 20110923, end: 20111202
  23. CARBOXYMETHYLCELLULOSE [Concomitant]
     Active Substance: CARBOXYMETHYLCELLULOSE
     Indication: EYE LUBRICATION THERAPY
     Dosage: 2 DROP, DAILY
     Route: 047
     Dates: start: 20110924, end: 20111202
  24. DIAZEPAM. [Concomitant]
     Active Substance: DIAZEPAM
     Indication: AGITATION
     Dosage: 30 MILLIGRAM, 4X/DAY (QID)
     Route: 048
     Dates: start: 20111005, end: 20111116
  25. FENTANYL. [Concomitant]
     Active Substance: FENTANYL
     Indication: AGITATION
     Dosage: 8.31 MCG/HR CONTINUOUS AT 0.17ML/HR
     Route: 042
     Dates: start: 20111010, end: 20111027
  26. PHENOBARBITAL. [Concomitant]
     Active Substance: PHENOBARBITAL
     Indication: SEIZURE
     Dosage: 100 MILLIGRAM, 2X/DAY (BID)
     Route: 042
     Dates: start: 20111010, end: 20111108
  27. CALCIUM CARBONATE. [Concomitant]
     Active Substance: CALCIUM CARBONATE
     Indication: NUTRITIONAL SUPPLEMENTATION
     Dosage: 400MG DAILY
     Route: 048
     Dates: start: 20110924, end: 20111202
  28. FENTANYL. [Concomitant]
     Active Substance: FENTANYL
     Indication: PAIN
     Dosage: 75 MICROGRAM, EVERY 1 HR AS NEEDED (PRN)
     Route: 042
     Dates: start: 20111010, end: 20111015
  29. MIDAZOLAM. [Concomitant]
     Active Substance: MIDAZOLAM
     Indication: EPILEPSY
     Dosage: 2.5 MILLIGRAM, AS NEEDED (EVERY 2 HOURS PRN)
     Route: 042
     Dates: start: 20111011, end: 20111019
  30. CLORAZEPATE [Concomitant]
     Active Substance: CLORAZEPATE DIPOTASSIUM
     Indication: SEIZURE
     Dosage: 7.5 MILLIGRAM, 3X/DAY (TID)
     Route: 048
     Dates: start: 20111011, end: 20111018
  31. SODIUM CHLORIDE. [Concomitant]
     Active Substance: SODIUM CHLORIDE
     Indication: ASTHMA
     Dosage: 3 MILLIGRAM, 4X/DAY (SODIUM CHLORIDE 3% NEB 3ML)
     Dates: start: 20111011, end: 20111029
  32. VANCOMYCIN [Concomitant]
     Active Substance: VANCOMYCIN
     Indication: URINARY TRACT INFECTION
     Dosage: 275 MILLIGRAM, 4X/DAY (QID)
     Route: 042
     Dates: start: 20111106, end: 20111108

REACTIONS (8)
  - Bradycardia [Recovered/Resolved]
  - Peripheral coldness [Unknown]
  - Urinary tract infection [Unknown]
  - Atrioventricular block [Unknown]
  - Oxygen saturation decreased [Unknown]
  - Respiratory disorder [Unknown]
  - Tachypnoea [Unknown]
  - Off label use [Unknown]

NARRATIVE: CASE EVENT DATE: 20110925
